FAERS Safety Report 24323829 (Version 1)
Quarter: 2024Q3

REPORT INFORMATION
  Report Type: Report from Study
  Country: CO (occurrence: CO)
  Receive Date: 20240916
  Receipt Date: 20240916
  Transmission Date: 20241016
  Serious: Yes (Other)
  Sender: JOHNSON AND JOHNSON
  Company Number: CO-JNJFOC-20240932994

PATIENT
  Age: 30 Year
  Sex: Male
  Weight: 68 kg

DRUGS (4)
  1. INVEGA TRINZA [Suspect]
     Active Substance: PALIPERIDONE PALMITATE
     Indication: Schizoaffective disorder
     Route: 030
     Dates: start: 20240805
  2. INVEGA TRINZA [Suspect]
     Active Substance: PALIPERIDONE PALMITATE
     Indication: Mental disorder
  3. INVEGA TRINZA [Suspect]
     Active Substance: PALIPERIDONE PALMITATE
  4. CLOZAPINE [Concomitant]
     Active Substance: CLOZAPINE

REACTIONS (2)
  - Drug abuse [Unknown]
  - Product use in unapproved indication [Unknown]
